FAERS Safety Report 4430731-9 (Version None)
Quarter: 2004Q3

REPORT INFORMATION
  Report Type: 
  Country: None (occurrence: None)
  Receive Date: 20040819
  Receipt Date: 20040819
  Transmission Date: 20050211
  Serious: Yes (Hospitalization)
  Sender: FDA-Public Use
  Company Number: None

PATIENT
  Age: 47 Year
  Sex: Male
  Weight: 84 kg

DRUGS (8)
  1. LORAZEPAM [Suspect]
     Indication: ANXIETY
     Dosage: 1MG  BID PRN  ORAL
     Route: 048
     Dates: start: 20031125, end: 20041206
  2. TEMAZEPAM [Suspect]
     Indication: INSOMNIA
     Dosage: 30MG  QHS  ORAL
     Route: 048
     Dates: start: 20031125, end: 20041206
  3. SERTRALINE HCL [Concomitant]
  4. HYDROXYZINE [Concomitant]
  5. TRAZODONE [Concomitant]
  6. PRAZOSIN HCL [Concomitant]
  7. NAPROXEN [Concomitant]
  8. ALBUTEROL [Concomitant]

REACTIONS (1)
  - INTENTIONAL OVERDOSE [None]
